FAERS Safety Report 12221580 (Version 2)
Quarter: 2016Q1

REPORT INFORMATION
  Report Type: Spontaneous
  Country: IT (occurrence: IT)
  Receive Date: 20160330
  Receipt Date: 20160331
  Transmission Date: 20160526
  Serious: Yes (Hospitalization)
  Sender: FDA-Public Use
  Company Number: IT-PFIZER INC-2016165624

PATIENT
  Age: 54 Year
  Sex: Female

DRUGS (7)
  1. DIFMETRE [Suspect]
     Active Substance: CAFFEINE\INDOMETHACIN\PROCHLORPERAZINE MALEATE
     Dosage: 1 DF, DAILY
     Route: 048
  2. PANTOPRAZOLO [Concomitant]
     Active Substance: PANTOPRAZOLE SODIUM
     Route: 048
  3. LYRICA [Concomitant]
     Active Substance: PREGABALIN
     Dosage: 2 DF, DAILY
     Route: 048
  4. TAVOR (LORAZEPAM) [Concomitant]
     Active Substance: LORAZEPAM
     Dosage: 1 DF DAILY AT 20:00
     Route: 048
  5. IMIGRAN /01044801/ [Suspect]
     Active Substance: SUMATRIPTAN
     Dosage: 25 MG, DAILY
     Route: 048
  6. LAROXYL [Suspect]
     Active Substance: AMITRIPTYLINE
     Dosage: 25 MG, DAILY
     Route: 048
  7. GAVISCON /00237601/ [Concomitant]
     Active Substance: ALUMINUM HYDROXIDE\MAGNESIUM CARBONATE
     Route: 048

REACTIONS (3)
  - Dyspepsia [Recovering/Resolving]
  - Abdominal pain [Recovering/Resolving]
  - Drug abuse [Recovering/Resolving]

NARRATIVE: CASE EVENT DATE: 20160217
